FAERS Safety Report 6888643-7 (Version None)
Quarter: 2010Q3

REPORT INFORMATION
  Report Type: 
  Country: None (occurrence: None)
  Receive Date: 20100730
  Receipt Date: 20071010
  Transmission Date: 20110219
  Serious: No
  Sender: FDA-Public Use
  Company Number: US-PFIZER INC-2007021725

PATIENT
  Sex: Female
  Weight: 43.54 kg

DRUGS (3)
  1. LIPITOR [Suspect]
     Indication: BLOOD CHOLESTEROL INCREASED
     Route: 048
     Dates: start: 20070316
  2. ATACAND [Concomitant]
  3. TOPROL-XL [Concomitant]

REACTIONS (1)
  - FATIGUE [None]
